FAERS Safety Report 9820243 (Version 1)
Quarter: 2014Q1

REPORT INFORMATION
  Report Type: Spontaneous
  Country: US (occurrence: None)
  Receive Date: 20140113
  Receipt Date: 20140113
  Transmission Date: 20141002
  Serious: Yes (Disabling)
  Sender: FDA-Public Use
  Company Number: None

PATIENT
  Age: 60 None
  Sex: Female

DRUGS (7)
  1. CLARITHROMYCIN EXTENDED RELEASE [Suspect]
     Indication: SINUSITIS
     Route: 048
     Dates: start: 20130823, end: 20130830
  2. LEVOTHYROXINE [Concomitant]
  3. METOPROLOL [Concomitant]
  4. ZOLOFT [Concomitant]
  5. BIO IDENTICAL HORMONES [Concomitant]
  6. BONE STRENGTH CALCIUM [Concomitant]
  7. VITAMIN D [Concomitant]

REACTIONS (11)
  - Heart rate increased [None]
  - Blood pressure increased [None]
  - Tremor [None]
  - Insomnia [None]
  - Nausea [None]
  - Weight decreased [None]
  - Electrocardiogram abnormal [None]
  - Malaise [None]
  - Nervous system disorder [None]
  - Pancreatic carcinoma [None]
  - Aphagia [None]
